FAERS Safety Report 24857695 (Version 2)
Quarter: 2025Q1

REPORT INFORMATION
  Report Type: Report from Study
  Country: US (occurrence: US)
  Receive Date: 20250117
  Receipt Date: 20250120
  Transmission Date: 20250409
  Serious: Yes (Other)
  Sender: ALEXION PHARMACEUTICALS
  Company Number: US-AstraZeneca-CH-00787172A

PATIENT
  Age: 76 Year
  Weight: 86.621 kg

DRUGS (8)
  1. DAPAGLIFLOZIN [Suspect]
     Active Substance: DAPAGLIFLOZIN
  2. ASPIRIN [Concomitant]
     Active Substance: ASPIRIN
  3. ATORVASTATIN [Concomitant]
     Active Substance: ATORVASTATIN
  4. CARVEDILOL [Concomitant]
     Active Substance: CARVEDILOL
  5. FLUTICASONE [Concomitant]
     Active Substance: FLUTICASONE
  6. LOSARTAN [Concomitant]
     Active Substance: LOSARTAN
  7. SPIRONOLACTONE [Concomitant]
     Active Substance: SPIRONOLACTONE
  8. TASIGNA [Concomitant]
     Active Substance: NILOTINIB

REACTIONS (6)
  - Chronic myeloid leukaemia [Unknown]
  - Diabetes mellitus [Unknown]
  - Muscle strain [Unknown]
  - Arthralgia [Unknown]
  - Obesity [Unknown]
  - Hypertensive heart disease [Unknown]
